FAERS Safety Report 5341315-2 (Version None)
Quarter: 2007Q2

REPORT INFORMATION
  Report Type: 
  Country: None (occurrence: None)
  Receive Date: 20070404
  Receipt Date: 20061205
  Transmission Date: 20071010
  Serious: Yes (Other)
  Sender: FDA-Public Use
  Company Number: 2006150344

PATIENT
  Age: 46 Year
  Sex: Female
  Weight: 77.5651 kg

DRUGS (4)
  1. GEODON [Suspect]
     Indication: MIGRAINE
     Dates: start: 20060501, end: 20060801
  2. BYETTA [Suspect]
     Indication: INSULIN RESISTANCE
     Dates: start: 20060101
  3. BYETTA [Suspect]
     Indication: WEIGHT DECREASED
     Dates: start: 20060101
  4. NORVASC [Concomitant]

REACTIONS (5)
  - BLOOD GLUCOSE INCREASED [None]
  - DECREASED APPETITE [None]
  - HYPERTENSION [None]
  - NAUSEA [None]
  - WEIGHT DECREASED [None]
